FAERS Safety Report 22141946 (Version 2)
Quarter: 2023Q2

REPORT INFORMATION
  Report Type: Spontaneous
  Country: AT (occurrence: None)
  Receive Date: 20230327
  Receipt Date: 20230503
  Transmission Date: 20230722
  Serious: Yes (Other)
  Sender: FDA-Public Use
  Company Number: AT-ROCHE-3314114

PATIENT
  Age: 60 Year
  Sex: Male

DRUGS (25)
  1. POLIVY [Suspect]
     Active Substance: POLATUZUMAB VEDOTIN-PIIQ
     Indication: Diffuse large B-cell lymphoma
     Dosage: IN 100 ML NACL 0.9 PERCENTAGE (2-8CENTIGRADE) 100 ML POLYPROPYLENE POUCH, FRESENIUS IV
     Route: 042
     Dates: start: 20230103, end: 20230108
  2. POLIVY [Suspect]
     Active Substance: POLATUZUMAB VEDOTIN-PIIQ
     Route: 065
     Dates: start: 20230103
  3. RITUXIMAB [Suspect]
     Active Substance: RITUXIMAB
     Indication: Diffuse large B-cell lymphoma
     Route: 042
     Dates: start: 20221212, end: 20221217
  4. RITUXIMAB [Suspect]
     Active Substance: RITUXIMAB
     Dosage: IN 500 ML NACL 0.9 PERCENATAGE 500 ML POLYPROPYLENE POUCH, FRESENIUS
     Route: 042
     Dates: start: 20230103, end: 20230108
  5. RITUXIMAB [Suspect]
     Active Substance: RITUXIMAB
     Route: 042
     Dates: start: 20230124, end: 20230129
  6. RITUXIMAB [Suspect]
     Active Substance: RITUXIMAB
     Route: 042
     Dates: start: 20230214, end: 20230219
  7. DOXORUBICIN HYDROCHLORIDE [Suspect]
     Active Substance: DOXORUBICIN HYDROCHLORIDE
     Indication: Diffuse large B-cell lymphoma
     Route: 065
     Dates: start: 20221212, end: 20221217
  8. DOXORUBICIN HYDROCHLORIDE [Suspect]
     Active Substance: DOXORUBICIN HYDROCHLORIDE
     Dosage: IN 250 ML NACL 0.9 PERCENTAGE 250 ML POLYPROPYLENE POUCH, FRESENIUS
     Route: 042
     Dates: start: 20230103, end: 20230108
  9. DOXORUBICIN HYDROCHLORIDE [Suspect]
     Active Substance: DOXORUBICIN HYDROCHLORIDE
     Route: 065
     Dates: start: 20230124, end: 20230129
  10. DOXORUBICIN HYDROCHLORIDE [Suspect]
     Active Substance: DOXORUBICIN HYDROCHLORIDE
     Route: 065
     Dates: start: 20230214, end: 20230219
  11. DOXORUBICIN HYDROCHLORIDE [Suspect]
     Active Substance: DOXORUBICIN HYDROCHLORIDE
     Dosage: 50 ML IN 250 ML NACL 0.9 PERCENTAGE 250 ML POLYPROPYLENE POUCH, FRESENIUS
     Route: 042
     Dates: start: 20230104
  12. PREDNISONE [Suspect]
     Active Substance: PREDNISONE
     Indication: Diffuse large B-cell lymphoma
     Route: 065
     Dates: start: 20221212, end: 20221217
  13. PREDNISONE [Suspect]
     Active Substance: PREDNISONE
     Route: 065
     Dates: start: 20230103, end: 20230108
  14. PREDNISONE [Suspect]
     Active Substance: PREDNISONE
     Route: 065
     Dates: start: 20230124, end: 20230129
  15. PREDNISONE [Suspect]
     Active Substance: PREDNISONE
     Route: 065
     Dates: start: 20230214, end: 20230219
  16. VINCRISTINE SULFATE [Suspect]
     Active Substance: VINCRISTINE SULFATE
     Indication: Diffuse large B-cell lymphoma
     Route: 065
     Dates: start: 20221212, end: 20221217
  17. CYCLOPHOSPHAMIDE [Suspect]
     Active Substance: CYCLOPHOSPHAMIDE
     Indication: Diffuse large B-cell lymphoma
     Dosage: IN 500 ML NACL 0.9 PERCENATAGE 500 ML POLYPROPYLENE POUCH, FRESENIUS, IV
     Route: 042
     Dates: start: 20230103, end: 20230108
  18. CYCLOPHOSPHAMIDE [Suspect]
     Active Substance: CYCLOPHOSPHAMIDE
     Route: 065
     Dates: start: 20221212, end: 20221217
  19. CYCLOPHOSPHAMIDE [Suspect]
     Active Substance: CYCLOPHOSPHAMIDE
     Route: 065
     Dates: start: 20230124, end: 20230129
  20. CYCLOPHOSPHAMIDE [Suspect]
     Active Substance: CYCLOPHOSPHAMIDE
     Route: 065
     Dates: start: 20230214, end: 20230219
  21. ONDANSETRON [Concomitant]
     Active Substance: ONDANSETRON
     Dosage: IN 100 ML NACL 0.9 PERCENTAGE IN POLYETHYLENE BOTTLE
     Route: 042
     Dates: start: 20230103, end: 20230108
  22. MESNA [Concomitant]
     Active Substance: MESNA
     Route: 048
     Dates: start: 20230104
  23. MESNA [Concomitant]
     Active Substance: MESNA
     Route: 040
     Dates: start: 20230103, end: 20230108
  24. DIPHENHYDRAMINE HYDROCHLORIDE [Concomitant]
     Active Substance: DIPHENHYDRAMINE HYDROCHLORIDE
     Dosage: IN 20 ML NACL 0.9 PERCENTAGE
     Route: 040
  25. ACETAMINOPHEN [Concomitant]
     Active Substance: ACETAMINOPHEN
     Route: 048
     Dates: start: 20230103, end: 20230108

REACTIONS (1)
  - Central nervous system lymphoma [Unknown]
